FAERS Safety Report 5314848-2 (Version None)
Quarter: 2007Q2

REPORT INFORMATION
  Report Type: 
  Country: None (occurrence: None)
  Receive Date: 20070426
  Receipt Date: 20070418
  Transmission Date: 20071010
  Serious: Yes (Other)
  Sender: FDA-Public Use
  Company Number: 2007SP007450

PATIENT
  Age: 54 Year
  Sex: Female

DRUGS (2)
  1. PEG-INTRON [Suspect]
     Indication: HEPATITIS C
     Dosage: SC
     Route: 058
     Dates: start: 20060918, end: 20070401
  2. REBETOL [Suspect]
     Indication: HEPATITIS C
     Dosage: PO
     Route: 048
     Dates: start: 20060918, end: 20070401

REACTIONS (4)
  - BLINDNESS TRANSIENT [None]
  - OPTIC NERVE INJURY [None]
  - OPTIC NERVE SHEATH HAEMORRHAGE [None]
  - VISUAL FIELD DEFECT [None]
